FAERS Safety Report 18584167 (Version 4)
Quarter: 2021Q2

REPORT INFORMATION
  Report Type: Spontaneous
  Country: DE (occurrence: DE)
  Receive Date: 20201207
  Receipt Date: 20210515
  Transmission Date: 20210717
  Serious: Yes (Hospitalization, Other)
  Sender: FDA-Public Use
  Company Number: DE-AUROBINDO-AUR-APL-2020-059870

PATIENT
  Sex: Female
  Weight: 115 kg

DRUGS (5)
  1. JAKAVI [Suspect]
     Active Substance: RUXOLITINIB
     Dosage: 10 MILLIGRAM, TWO TIMES A DAY
     Route: 048
     Dates: start: 20200707, end: 20201120
  2. IBUPROFEN. [Suspect]
     Active Substance: IBUPROFEN
     Indication: PAIN
     Dosage: 500 MILLIGRAM, (UPTO 3 TIMES PER DAY)
     Route: 048
     Dates: start: 202011, end: 20201114
  3. BISOPROLOL [Concomitant]
     Active Substance: BISOPROLOL
     Indication: HYPERTENSION
     Dosage: 10 MILLIGRAM, ONCE A DAY,  (1?0?0)
     Route: 048
     Dates: start: 20170808
  4. IBUPROFEN. [Suspect]
     Active Substance: IBUPROFEN
     Dosage: 500 MILLIGRAM, (500 MG UP TO 3 TIMES PER DAY)
     Route: 048
     Dates: start: 20201114
  5. JAKAVI [Suspect]
     Active Substance: RUXOLITINIB
     Indication: POLYCYTHAEMIA VERA
     Dosage: 15 MILLIGRAM, TWO TIMES A DAY
     Route: 048
     Dates: start: 20200522, end: 20200706

REACTIONS (2)
  - Upper gastrointestinal haemorrhage [Recovered/Resolved]
  - Abdominal distension [Unknown]

NARRATIVE: CASE EVENT DATE: 202011
